FAERS Safety Report 8895981 (Version 3)
Quarter: 2014Q2

REPORT INFORMATION
  Report Type: Spontaneous
  Country: US (occurrence: US)
  Receive Date: 20121107
  Receipt Date: 20130810
  Transmission Date: 20141212
  Serious: Yes (Hospitalization)
  Sender: FDA-Public Use
  Company Number: US-BAXTER-2012BAX022256

PATIENT
  Age: 48 Year
  Sex: Female

DRUGS (1)
  1. DIANEAL PD2 [Suspect]
     Indication: PERITONEAL DIALYSIS
     Route: 033

REACTIONS (1)
  - Cerebrovascular accident [Recovering/Resolving]
